FAERS Safety Report 14519977 (Version 2)
Quarter: 2018Q2

REPORT INFORMATION
  Report Type: Spontaneous
  Country: IT (occurrence: IT)
  Receive Date: 20180212
  Receipt Date: 20180405
  Transmission Date: 20180711
  Serious: Yes (Life-Threatening, Other)
  Sender: FDA-Public Use
  Company Number: PHHY2018IT013799

PATIENT
  Age: 89 Year
  Sex: Female
  Weight: 70 kg

DRUGS (4)
  1. SINTROM [Interacting]
     Active Substance: ACENOCOUMAROL
     Indication: THROMBOSIS PROPHYLAXIS
     Dosage: UNK
     Route: 048
  2. VOLTAREN [Interacting]
     Active Substance: DICLOFENAC SODIUM
     Indication: THROMBOSIS PROPHYLAXIS
  3. SINTROM [Interacting]
     Active Substance: ACENOCOUMAROL
     Indication: INFLAMMATORY PAIN
  4. VOLTAREN [Suspect]
     Active Substance: DICLOFENAC SODIUM
     Indication: INFLAMMATORY PAIN
     Dosage: UNK
     Route: 048

REACTIONS (3)
  - Drug interaction [Unknown]
  - Gastrointestinal haemorrhage [Recovering/Resolving]
  - Overdose [Recovering/Resolving]

NARRATIVE: CASE EVENT DATE: 20180120
